FAERS Safety Report 24783617 (Version 1)
Quarter: 2024Q4

REPORT INFORMATION
  Report Type: Spontaneous
  Country: US (occurrence: None)
  Receive Date: 20241227
  Receipt Date: 20241227
  Transmission Date: 20250115
  Serious: No
  Sender: Public
  Company Number: None

PATIENT
  Age: 74 Year
  Sex: Male
  Weight: 71 kg

DRUGS (1)
  1. MIRTAZAPINE [Suspect]
     Active Substance: MIRTAZAPINE
     Indication: Affective disorder
     Dosage: 7.50 MG AT BEDTIME ORAL
     Route: 048

REACTIONS (4)
  - Fall [None]
  - Somnolence [None]
  - Orthostatic hypotension [None]
  - Therapy cessation [None]

NARRATIVE: CASE EVENT DATE: 20240726
